FAERS Safety Report 17224119 (Version 1)
Quarter: 2020Q1

REPORT INFORMATION
  Report Type: Spontaneous
  Country: IT (occurrence: IT)
  Receive Date: 20200102
  Receipt Date: 20200102
  Transmission Date: 20200409
  Serious: Yes (Hospitalization)
  Sender: FDA-Public Use
  Company Number: IT-TEVA-2019-IT-1160441

PATIENT
  Age: 4 Year
  Sex: Male
  Weight: 14 kg

DRUGS (1)
  1. LEVOFLOXACIN. [Suspect]
     Active Substance: LEVOFLOXACIN
     Dosage: 2 G
     Route: 048
     Dates: start: 20191201, end: 20191201

REACTIONS (3)
  - Salivary hypersecretion [Recovering/Resolving]
  - Crying [Recovering/Resolving]
  - Vomiting [Recovering/Resolving]

NARRATIVE: CASE EVENT DATE: 20191201
